FAERS Safety Report 7890028-1 (Version None)
Quarter: 2011Q4

REPORT INFORMATION
  Report Type: 
  Country: None (occurrence: None)
  Receive Date: 20111103
  Receipt Date: 20111101
  Transmission Date: 20120403
  Serious: Yes (Life-Threatening, Hospitalization)
  Sender: FDA-Public Use
  Company Number: PHFR2011GB06283

PATIENT
  Age: 80 Year
  Sex: Male

DRUGS (3)
  1. DICLOFENAC SODIUM [Suspect]
     Indication: OSTEOARTHRITIS
     Dosage: 75 MG, BID
     Route: 048
     Dates: start: 19950815
  2. VALPROATE SODIUM [Concomitant]
     Dosage: 250 MG, TID
     Dates: start: 20050720
  3. CITALOPRAM HYDROBROMIDE [Concomitant]
     Dosage: 20 MG, QD
     Dates: start: 20051025

REACTIONS (3)
  - LIVER FUNCTION TEST ABNORMAL [None]
  - HEPATIC NEOPLASM [None]
  - ABDOMINAL PAIN [None]
